FAERS Safety Report 24149918 (Version 2)
Quarter: 2024Q3

REPORT INFORMATION
  Report Type: Spontaneous
  Country: BR (occurrence: BR)
  Receive Date: 20240730
  Receipt Date: 20240808
  Transmission Date: 20241017
  Serious: Yes (Death, Hospitalization, Other)
  Sender: CELLTRION
  Company Number: BR-CELLTRION INC.-2023BR001077

PATIENT

DRUGS (6)
  1. INFLIXIMAB [Suspect]
     Active Substance: INFLIXIMAB
     Indication: Colitis
     Dosage: EVERY 8 WEEKS
     Route: 042
     Dates: start: 20220506
  2. INFLIXIMAB [Suspect]
     Active Substance: INFLIXIMAB
     Dosage: UNK DOSE EVERY 8 WEEKS
     Route: 042
     Dates: start: 20230102
  3. INFLIXIMAB [Suspect]
     Active Substance: INFLIXIMAB
     Dosage: UNK DOSE EVERY 8 WEEKS
     Route: 042
     Dates: start: 20230228
  4. HEMAX [EPOETIN ALFA] [Concomitant]
     Indication: Anaemia
     Dosage: 3 AMPOULES PER WEEK (START: 1 MORE YEAR ; STOP: CONTINUED)
     Route: 065
  5. PURAN [Concomitant]
     Active Substance: LEVOTHYROXINE SODIUM
     Indication: Product used for unknown indication
     Dosage: UNK
     Route: 065
  6. PREDNISONE [Concomitant]
     Active Substance: PREDNISONE
     Indication: Product used for unknown indication
     Dosage: UNK
     Route: 065

REACTIONS (6)
  - Death [Fatal]
  - Syncope [Fatal]
  - Gastric ulcer [Unknown]
  - Impaired healing [Unknown]
  - Intentional dose omission [Unknown]
  - Inappropriate schedule of product administration [Unknown]
